FAERS Safety Report 22332090 (Version 1)
Quarter: 2023Q2

REPORT INFORMATION
  Report Type: Spontaneous
  Country: CN (occurrence: CN)
  Receive Date: 20230517
  Receipt Date: 20230517
  Transmission Date: 20230722
  Serious: Yes (Hospitalization, Other)
  Sender: FDA-Public Use
  Company Number: CN-OTSUKA-2023_012452

PATIENT
  Age: 2 Year
  Sex: Female

DRUGS (1)
  1. ABILIFY [Suspect]
     Active Substance: ARIPIPRAZOLE
     Indication: Product used for unknown indication
     Dosage: UNK 5 MG (LESS THAN 10 TABLETS)
     Route: 048
     Dates: start: 20230509, end: 20230509

REACTIONS (4)
  - Gaze palsy [Unknown]
  - Accidental exposure to product by child [Unknown]
  - Muscle tightness [Unknown]
  - Somnolence [Unknown]

NARRATIVE: CASE EVENT DATE: 20230509
